FAERS Safety Report 4462333-2 (Version None)
Quarter: 2004Q3

REPORT INFORMATION
  Report Type: 
  Country: None (occurrence: None)
  Receive Date: 20040929
  Receipt Date: 20040915
  Transmission Date: 20050211
  Serious: Yes (Death, Hospitalization)
  Sender: FDA-Public Use
  Company Number: PHBS2004JP12292

PATIENT
  Age: 14 Year
  Sex: Male

DRUGS (9)
  1. CYCLOSPORINE [Suspect]
     Indication: BONE MARROW TRANSPLANT
     Route: 065
  2. METHOTREXATE [Suspect]
     Indication: BONE MARROW TRANSPLANT
  3. PREDNISOLONE [Suspect]
     Indication: BONE MARROW TRANSPLANT
  4. FLUDARABINE PHOSPHATE [Concomitant]
     Indication: BONE MARROW TRANSPLANT
  5. CYCLOPHOSPHAMIDE [Concomitant]
     Indication: BONE MARROW TRANSPLANT
  6. IRRADIATION [Concomitant]
     Indication: BONE MARROW TRANSPLANT
  7. GANCICLOVIR [Suspect]
  8. VIDARABINE [Suspect]
  9. RIBAVIRIN [Suspect]

REACTIONS (12)
  - ADENOVIRUS INFECTION [None]
  - BLOOD BILIRUBIN INCREASED [None]
  - CYSTITIS HAEMORRHAGIC [None]
  - DIARRHOEA [None]
  - GRAFT VERSUS HOST DISEASE [None]
  - HEPATIC FIBROSIS [None]
  - HEPATITIS [None]
  - PANCYTOPENIA [None]
  - PNEUMONIA [None]
  - PSYCHIATRIC SYMPTOM [None]
  - RASH [None]
  - RENAL FAILURE [None]
